FAERS Safety Report 11248099 (Version 1)
Quarter: 2015Q3

REPORT INFORMATION
  Report Type: Spontaneous
  Country: US (occurrence: None)
  Receive Date: 20150707
  Receipt Date: 20150707
  Transmission Date: 20151125
  Serious: Yes (Life-Threatening, Hospitalization)
  Sender: FDA-Public Use
  Company Number: None

PATIENT
  Age: 52 Year
  Sex: Male
  Weight: 61.9 kg

DRUGS (10)
  1. AZITHROMYCIN [Concomitant]
     Active Substance: AZITHROMYCIN ANHYDROUS
  2. INSULIN GLARGINE [Concomitant]
     Active Substance: INSULIN GLARGINE
  3. RIFAMPIN. [Concomitant]
     Active Substance: RIFAMPIN
  4. CEFEPIME [Suspect]
     Active Substance: CEFEPIME HYDROCHLORIDE
     Indication: PNEUMONIA
     Route: 042
  5. MYAMBUTOL [Concomitant]
     Active Substance: ETHAMBUTOL HYDROCHLORIDE
  6. CEFTRIAXONE 2GM B BRAUN [Suspect]
     Active Substance: CEFTRIAXONE
     Indication: PNEUMONIA
     Dosage: Q24HRS
     Route: 042
  7. ISONIAZID. [Concomitant]
     Active Substance: ISONIAZID
  8. SLIDING SCALE INSULIN ASPART [Concomitant]
  9. PYRAZINAMIDE. [Concomitant]
     Active Substance: PYRAZINAMIDE
  10. VANCOMYCIN [Concomitant]
     Active Substance: VANCOMYCIN

REACTIONS (2)
  - Refusal of treatment by patient [None]
  - Haemolytic anaemia [None]

NARRATIVE: CASE EVENT DATE: 20150627
